FAERS Safety Report 9657671 (Version 3)
Quarter: 2013Q4

REPORT INFORMATION
  Report Type: Spontaneous
  Country: JP (occurrence: JP)
  Receive Date: 20131030
  Receipt Date: 20131126
  Transmission Date: 20140711
  Serious: Yes (Life-Threatening, Hospitalization, Other)
  Sender: FDA-Public Use
  Company Number: JP-PFIZER INC-2013297973

PATIENT
  Age: 81 Year
  Sex: Male
  Weight: 56 kg

DRUGS (9)
  1. INLYTA [Suspect]
     Indication: RENAL CANCER
     Dosage: 5 MG, 2X/DAY
     Route: 048
     Dates: start: 20130107
  2. NEXAVAR [Suspect]
     Dosage: 400 MG, 2X/DAY
     Route: 048
     Dates: start: 20090831, end: 20130609
  3. DOPS [Suspect]
     Dosage: 600 MG, 3X/DAY
     Route: 048
     Dates: start: 20070909
  4. IRBETAN [Concomitant]
     Dosage: 100 MG, 1X/DAY
     Route: 048
     Dates: start: 20090831
  5. MUCOSOLVAN [Concomitant]
     Dosage: 45 MG, 3X/DAY
     Route: 048
     Dates: start: 20090831
  6. BAYASPIRIN [Concomitant]
     Dosage: 100 MG, 1X/DAY
     Route: 048
     Dates: start: 20070909
  7. YODEL [Concomitant]
     Dosage: 160 MG, 1X/DAY
     Route: 048
     Dates: start: 20070909
  8. BIOFERMIN [Concomitant]
     Dosage: 3 G, 3X/DAY
     Route: 048
     Dates: start: 20090831
  9. MENESIT [Concomitant]
     Dosage: 200 MG, 2X/DAY
     Route: 048
     Dates: start: 20070909

REACTIONS (1)
  - Acute coronary syndrome [Recovered/Resolved]
